FAERS Safety Report 21116420 (Version 1)
Quarter: 2022Q3

REPORT INFORMATION
  Report Type: Spontaneous
  Country: US (occurrence: US)
  Receive Date: 20220722
  Receipt Date: 20220722
  Transmission Date: 20221027
  Serious: Yes (Other)
  Sender: FDA-Public Use
  Company Number: US-AMGEN-USASP2022124052

PATIENT
  Age: 78 Year
  Sex: Female

DRUGS (2)
  1. BEVACIZUMAB [Suspect]
     Active Substance: BEVACIZUMAB
     Indication: Heyde^s syndrome
     Dosage: 5 MILLIGRAM/KILOGRAM, 4-DOSE INDUCTION REGIMEN
     Route: 065
  2. BEVACIZUMAB [Suspect]
     Active Substance: BEVACIZUMAB
     Dosage: 5 MILLIGRAM/KILOGRAM, 4-DOSE INDUCTION REGIMEN
     Route: 065

REACTIONS (6)
  - Haemoglobin decreased [Unknown]
  - Melaena [Unknown]
  - Drug effective for unapproved indication [Unknown]
  - Off label use [Unknown]
  - Dyspnoea [Unknown]
  - Fatigue [Unknown]
